FAERS Safety Report 12217113 (Version 2)
Quarter: 2016Q2

REPORT INFORMATION
  Report Type: Spontaneous
  Country: AU (occurrence: AU)
  Receive Date: 20160329
  Receipt Date: 20160530
  Transmission Date: 20160815
  Serious: Yes (Other)
  Sender: FDA-Public Use
  Company Number: AU-WATSON-2016-06762

PATIENT
  Age: 39 Year
  Sex: Male

DRUGS (2)
  1. NEOTIGASON [Suspect]
     Active Substance: ACITRETIN
     Indication: PSORIASIS
     Dosage: 30 MG, DAILY
     Route: 065
     Dates: start: 2012
  2. NEOTIGASON [Suspect]
     Active Substance: ACITRETIN
     Dosage: 10 MG DAILY
     Route: 065

REACTIONS (1)
  - Erectile dysfunction [Not Recovered/Not Resolved]

NARRATIVE: CASE EVENT DATE: 2012
